FAERS Safety Report 14524641 (Version 8)
Quarter: 2021Q2

REPORT INFORMATION
  Report Type: Report from Study
  Country: US (occurrence: US)
  Receive Date: 20180213
  Receipt Date: 20210626
  Transmission Date: 20210716
  Serious: Yes (Hospitalization, Other)
  Sender: FDA-Public Use
  Company Number: US-TAKEDA-2018TUS003100

PATIENT
  Age: 54 Year
  Sex: Female

DRUGS (2)
  1. PONATINIB [Suspect]
     Active Substance: PONATINIB
     Dosage: 15 MILLIGRAM, QD
     Route: 048
     Dates: start: 201803
  2. PONATINIB [Suspect]
     Active Substance: PONATINIB
     Indication: CHRONIC MYELOID LEUKAEMIA RECURRENT
     Dosage: 30 MILLIGRAM, QD
     Route: 048
     Dates: start: 20170307

REACTIONS (17)
  - Drug intolerance [Unknown]
  - Product dose omission issue [Unknown]
  - Bronchitis [Recovering/Resolving]
  - Rash [Unknown]
  - Weight decreased [Unknown]
  - Dizziness [Unknown]
  - Memory impairment [Unknown]
  - Fatigue [Recovered/Resolved]
  - Night sweats [Recovered/Resolved]
  - Adjustment disorder with depressed mood [Recovering/Resolving]
  - Nephrolithiasis [Unknown]
  - Dysphonia [Unknown]
  - Constipation [Unknown]
  - Arthralgia [Unknown]
  - Off label use [Unknown]
  - Bronchial hyperreactivity [Recovering/Resolving]
  - Myocardial infarction [Unknown]

NARRATIVE: CASE EVENT DATE: 20180207
